FAERS Safety Report 21527490 (Version 2)
Quarter: 2023Q1

REPORT INFORMATION
  Report Type: Spontaneous
  Country: FR (occurrence: FR)
  Receive Date: 20221031
  Receipt Date: 20230112
  Transmission Date: 20230418
  Serious: Yes (Other)
  Sender: FDA-Public Use
  Company Number: FR-BRISTOL-MYERS SQUIBB COMPANY-2022-128391

PATIENT
  Age: 76 Year
  Sex: Female

DRUGS (4)
  1. ELIQUIS [Suspect]
     Active Substance: APIXABAN
     Indication: Cerebrovascular accident prophylaxis
     Dosage: 1 TABLET IN THE MORNING AND EVENING FOR 3 MONTHS
     Route: 048
  2. IMOVANE [Concomitant]
     Active Substance: ZOPICLONE
     Indication: Sleep disorder
     Dosage: 5 MG TABLET (IMOVANE)- 1 + 1/2 TABLET ORALLY IN THE EVENING FOR 1 MONTH
     Route: 048
  3. LACTULOSE ARROW [Concomitant]
     Indication: Product used for unknown indication
     Dosage: 10 G ORAL SOLUTION PACKET (LACTULOSE ARROW)- 1 PACKET ORALLY IN THE MORNING FOR 3 MONTHS
     Route: 048
  4. CHOLECALCIFEROL [Concomitant]
     Active Substance: CHOLECALCIFEROL
     Indication: Product used for unknown indication
     Dosage: 50 000 UI/2 ML ORAL SOLUTION (ZYMAD)- AMPULE TAKEN ORALLY ONCE A MONTH
     Route: 048

REACTIONS (3)
  - Malaise [Recovering/Resolving]
  - Loss of consciousness [Unknown]
  - Intentional product use issue [Unknown]
